FAERS Safety Report 5456560-5 (Version None)
Quarter: 2007Q3

REPORT INFORMATION
  Report Type: 
  Country: None (occurrence: None)
  Receive Date: 20070918
  Receipt Date: 20070913
  Transmission Date: 20080115
  Serious: Yes (Other)
  Sender: FDA-Public Use
  Company Number: B0487392A

PATIENT
  Sex: Female

DRUGS (1)
  1. SEROXAT [Suspect]
     Indication: PANIC ATTACK
     Dosage: 20MG PER DAY
     Route: 065
     Dates: start: 20040101

REACTIONS (7)
  - AGGRESSION [None]
  - ALOPECIA [None]
  - CRYING [None]
  - DIZZINESS [None]
  - DRUG WITHDRAWAL SYNDROME [None]
  - RASH [None]
  - VOMITING [None]
